FAERS Safety Report 6709033-3 (Version None)
Quarter: 2010Q2

REPORT INFORMATION
  Report Type: 
  Country: None (occurrence: None)
  Receive Date: 20100504
  Receipt Date: 20100426
  Transmission Date: 20101027
  Serious: Yes (Death, Other)
  Sender: FDA-Public Use
  Company Number: US-CELGENEUS-163-21880-10022106

PATIENT
  Sex: Female

DRUGS (6)
  1. REVLIMID [Suspect]
     Indication: MULTIPLE MYELOMA
     Route: 048
     Dates: start: 20091001
  2. REVLIMID [Suspect]
     Dosage: 15-25MG
     Route: 048
     Dates: start: 20071101, end: 20080301
  3. REVLIMID [Suspect]
     Route: 048
     Dates: start: 20090601, end: 20091001
  4. DEXAMETHASONE [Concomitant]
     Indication: MULTIPLE MYELOMA
     Route: 065
  5. ASPIRIN [Concomitant]
     Indication: THROMBOSIS PROPHYLAXIS
     Route: 065
  6. COUMADIN [Concomitant]
     Indication: THROMBOSIS PROPHYLAXIS
     Route: 065

REACTIONS (2)
  - EMBOLISM [None]
  - SUDDEN CARDIAC DEATH [None]
